FAERS Safety Report 14262176 (Version 1)
Quarter: 2017Q4

REPORT INFORMATION
  Report Type: Spontaneous
  Country: ES (occurrence: ES)
  Receive Date: 20171208
  Receipt Date: 20171208
  Transmission Date: 20180321
  Serious: Yes (Other)
  Sender: FDA-Public Use
  Company Number: ES-CIPLA LTD.-2017ES22034

PATIENT

DRUGS (13)
  1. CYCLOPHOSPHAMIDE. [Concomitant]
     Active Substance: CYCLOPHOSPHAMIDE
     Indication: NON-HODGKIN^S LYMPHOMA STAGE IV
     Dosage: UNK, 8 CYCLES (R-CHOP 21)
     Route: 065
     Dates: start: 201506, end: 201512
  2. PREDNISONE. [Concomitant]
     Active Substance: PREDNISONE
     Indication: NON-HODGKIN^S LYMPHOMA STAGE IV
     Dosage: UNK, 8 CYCLES (R-CHOP 21)
     Route: 065
     Dates: start: 201506, end: 201512
  3. QUETIAPINE. [Suspect]
     Active Substance: QUETIAPINE
     Indication: MANIA
     Dosage: 300 MG, QD
     Route: 065
  4. IVABRADINE [Concomitant]
     Active Substance: IVABRADINE
     Indication: SYSTOLIC DYSFUNCTION
     Dosage: UNK
     Route: 065
  5. VINCRISTINE [Concomitant]
     Active Substance: VINCRISTINE
     Indication: NON-HODGKIN^S LYMPHOMA STAGE IV
     Dosage: UNK, 8 CYCLES (R-CHOP 21)
     Route: 065
     Dates: start: 201506, end: 201512
  6. RISPERIDONE. [Suspect]
     Active Substance: RISPERIDONE
     Indication: PSYCHOTIC SYMPTOM
  7. LINEZOLID. [Concomitant]
     Active Substance: LINEZOLID
     Indication: INFECTION
  8. QUETIAPINE. [Suspect]
     Active Substance: QUETIAPINE
     Indication: PSYCHOTIC SYMPTOM
  9. RITUXIMAB. [Concomitant]
     Active Substance: RITUXIMAB
     Indication: NON-HODGKIN^S LYMPHOMA STAGE IV
     Dosage: UNK, 8 CYCLES (R-CHOP 21)
     Route: 065
     Dates: start: 201506, end: 201512
  10. DOXORUBICIN [Suspect]
     Active Substance: DOXORUBICIN
     Indication: NON-HODGKIN^S LYMPHOMA STAGE IV
     Dosage: UNK, 8 CYCLES (R-CHOP 21)
     Route: 065
     Dates: start: 201506, end: 201512
  11. RISPERIDONE. [Suspect]
     Active Substance: RISPERIDONE
     Indication: MANIA
     Dosage: 6 MG, QD
     Route: 065
  12. DIGOXIN. [Suspect]
     Active Substance: DIGOXIN
     Indication: SYSTOLIC DYSFUNCTION
     Dosage: UNK
     Route: 065
  13. LINEZOLID. [Concomitant]
     Active Substance: LINEZOLID
     Indication: DIARRHOEA
     Dosage: UNK
     Route: 065

REACTIONS (6)
  - Systolic dysfunction [Unknown]
  - Therapy non-responder [Unknown]
  - Cardiotoxicity [Unknown]
  - Mania [Recovering/Resolving]
  - Psychotic symptom [Recovering/Resolving]
  - Acute pulmonary oedema [Unknown]

NARRATIVE: CASE EVENT DATE: 201601
